FAERS Safety Report 25971033 (Version 1)
Quarter: 2025Q4

REPORT INFORMATION
  Report Type: Spontaneous
  Country: EU (occurrence: EU)
  Receive Date: 20251028
  Receipt Date: 20251028
  Transmission Date: 20260118
  Serious: Yes (Other)
  Sender: NOVO NORDISK
  Company Number: EU-NOVOPROD-1544621

PATIENT
  Sex: Male

DRUGS (1)
  1. ALHEMO [Suspect]
     Active Substance: CONCIZUMAB-MTCI
     Indication: Product used for unknown indication
     Dosage: 4.2 MG, QD

REACTIONS (2)
  - Haemarthrosis [Unknown]
  - Haemarthrosis [Unknown]
